FAERS Safety Report 26038656 (Version 1)
Quarter: 2025Q4

REPORT INFORMATION
  Report Type: Spontaneous
  Country: US (occurrence: US)
  Receive Date: 20251113
  Receipt Date: 20251113
  Transmission Date: 20260118
  Serious: No
  Sender: ALVOGEN
  Company Number: US-ALVOGEN-2025097787

PATIENT
  Sex: Female

DRUGS (1)
  1. TERIPARATIDE [Suspect]
     Active Substance: TERIPARATIDE
     Indication: Stress fracture
     Dosage: STRENGTH: 250 MCG/ML, DAILY, ONGOING?EXPIRATION DATE: 31-JUL-2026
     Route: 058
     Dates: start: 202309

REACTIONS (3)
  - Product dose omission issue [Unknown]
  - Product storage error [Unknown]
  - Product use in unapproved indication [Unknown]
